FAERS Safety Report 18524873 (Version 1)
Quarter: 2020Q4

REPORT INFORMATION
  Report Type: Spontaneous
  Country: AU (occurrence: AU)
  Receive Date: 20201120
  Receipt Date: 20201120
  Transmission Date: 20210114
  Serious: Yes (Life-Threatening, Hospitalization, Other)
  Sender: FDA-Public Use
  Company Number: AU-LUPIN PHARMACEUTICALS INC.-2020-09030

PATIENT
  Age: 42 Year
  Sex: Male

DRUGS (2)
  1. AMPHOTERICIN B, LIPOSOME [Suspect]
     Active Substance: AMPHOTERICIN B
     Indication: CRYPTOCOCCOSIS
     Dosage: 4 MILLIGRAM/KILOGRAM (4 MG/KG-1)
     Route: 065
  2. FLUCYTOSINE. [Suspect]
     Active Substance: FLUCYTOSINE
     Indication: CRYPTOCOCCOSIS
     Dosage: 100 MILLIGRAM/KILOGRAM, QD (100 MILLIGRAM/KILOGRAM (100 MG/KG-1 DAY-1))
     Route: 065

REACTIONS (4)
  - Immune reconstitution inflammatory syndrome [Recovering/Resolving]
  - Respiratory failure [Recovering/Resolving]
  - Pyrexia [Recovered/Resolved]
  - Renal failure [Recovering/Resolving]
